FAERS Safety Report 19927901 (Version 1)
Quarter: 2021Q4

REPORT INFORMATION
  Report Type: Spontaneous
  Country: US (occurrence: US)
  Receive Date: 20211005
  Receipt Date: 20211005
  Transmission Date: 20220303
  Serious: Yes (Other)
  Sender: FDA-Public Use
  Company Number: None

PATIENT
  Age: 73 Year
  Sex: Male
  Weight: 82.55 kg

DRUGS (5)
  1. ELIQUIS [Suspect]
     Active Substance: APIXABAN
     Indication: Thrombosis
     Dosage: ?          QUANTITY:1 PILL 2.5 MG QD;
     Route: 048
     Dates: start: 20210619, end: 20210915
  2. ELIQUIS [Suspect]
     Active Substance: APIXABAN
     Indication: Pulmonary thrombosis
  3. ELEQUIS [Concomitant]
  4. PEPCID [Concomitant]
     Active Substance: FAMOTIDINE
  5. DIETARY SUPPLEMENT [Concomitant]
     Active Substance: DIETARY SUPPLEMENT

REACTIONS (2)
  - Haemorrhoidal haemorrhage [None]
  - Gastric disorder [None]

NARRATIVE: CASE EVENT DATE: 20210801
